FAERS Safety Report 7191057-6 (Version None)
Quarter: 2010Q4

REPORT INFORMATION
  Report Type: 
  Country: None (occurrence: None)
  Receive Date: 20101222
  Receipt Date: 20101222
  Transmission Date: 20110411
  Serious: Yes (Life-Threatening)
  Sender: FDA-Public Use
  Company Number: None

PATIENT
  Sex: Female
  Weight: 64.8644 kg

DRUGS (1)
  1. SULFAMETHOXAZOLE AND TRIMETHOPRIM [Suspect]
     Indication: URINARY TRACT INFECTION
     Dosage: 800/160 2X DAILY ORAL
     Route: 048
     Dates: start: 20101028, end: 20101030

REACTIONS (8)
  - APHASIA [None]
  - CHOKING [None]
  - COUGH [None]
  - DYSPHONIA [None]
  - DYSPNOEA AT REST [None]
  - FEAR [None]
  - HAEMATOCHEZIA [None]
  - VOMITING [None]
